FAERS Safety Report 5297364-6 (Version None)
Quarter: 2007Q2

REPORT INFORMATION
  Report Type: 
  Country: None (occurrence: None)
  Receive Date: 20070416
  Receipt Date: 20070403
  Transmission Date: 20071010
  Serious: Yes (Hospitalization)
  Sender: FDA-Public Use
  Company Number: PHBS2007CN02072

PATIENT
  Age: 22 Year
  Sex: Female

DRUGS (1)
  1. VOLTAREN [Suspect]
     Indication: RHEUMATOID ARTHRITIS
     Dosage: 50 MG, TID
     Route: 048
     Dates: start: 19930411

REACTIONS (17)
  - BACK PAIN [None]
  - BLOOD BILIRUBIN INCREASED [None]
  - BONE MARROW DISORDER [None]
  - CARDIAC MURMUR [None]
  - CHILLS [None]
  - DIZZINESS [None]
  - ELECTROPHORESIS [None]
  - HAEMOGLOBIN DECREASED [None]
  - HAEMOLYTIC ANAEMIA [None]
  - HAPTOGLOBIN INCREASED [None]
  - PAIN IN EXTREMITY [None]
  - PYREXIA [None]
  - RED BLOOD CELL ABNORMALITY [None]
  - RED BLOOD CELL COUNT DECREASED [None]
  - RETICULOCYTE COUNT INCREASED [None]
  - UROBILIN URINE PRESENT [None]
  - WHITE BLOOD CELL COUNT INCREASED [None]
